FAERS Safety Report 6895106-1 (Version None)
Quarter: 2010Q3

REPORT INFORMATION
  Report Type: 
  Country: None (occurrence: None)
  Receive Date: 20100802
  Receipt Date: 20100719
  Transmission Date: 20110219
  Serious: Yes (Hospitalization)
  Sender: FDA-Public Use
  Company Number: FR-JNJFOC-20100708987

PATIENT
  Sex: Male

DRUGS (11)
  1. IXPRIM [Suspect]
     Indication: PRODUCT USED FOR UNKNOWN INDICATION
     Route: 048
  2. PREVISCAN (FLUINDIONE) [Suspect]
     Indication: PRODUCT USED FOR UNKNOWN INDICATION
     Dosage: 1 PER DAY
     Route: 048
  3. PREVISCAN (FLUINDIONE) [Suspect]
     Dosage: 1 PER DAY
     Route: 048
  4. KARDEGIC [Concomitant]
  5. TENORMIN [Concomitant]
  6. PERINDOPRIL ERBUMINE [Concomitant]
  7. TAHOR [Concomitant]
  8. LOVENOX [Concomitant]
  9. MORPHINE SULFATE [Concomitant]
  10. DOLIPRANE [Concomitant]
  11. RED BLOOD CELLS [Concomitant]

REACTIONS (1)
  - LEUKOCYTOCLASTIC VASCULITIS [None]
